FAERS Safety Report 4545550-2 (Version None)
Quarter: 2005Q1

REPORT INFORMATION
  Report Type: 
  Country: None (occurrence: None)
  Receive Date: 20050105
  Receipt Date: 20041117
  Transmission Date: 20050727
  Serious: Yes (Hospitalization)
  Sender: FDA-Public Use
  Company Number: US-MERCK-0411USA02943

PATIENT
  Age: 71 Year
  Sex: Female
  Weight: 66 kg

DRUGS (6)
  1. VIOXX [Suspect]
     Indication: ARTHRITIS
     Route: 048
     Dates: start: 20040423, end: 20040401
  2. VIOXX [Suspect]
     Route: 048
     Dates: start: 20040401, end: 20040901
  3. VIOXX [Suspect]
     Indication: BACK PAIN
     Route: 048
     Dates: start: 20040423, end: 20040401
  4. VIOXX [Suspect]
     Route: 048
     Dates: start: 20040401, end: 20040901
  5. ZYRTEC [Concomitant]
     Route: 048
     Dates: end: 20040917
  6. MEDROL [Concomitant]
     Route: 048
     Dates: end: 20040917

REACTIONS (4)
  - CHEST PAIN [None]
  - HEART RATE IRREGULAR [None]
  - PALPITATIONS [None]
  - VENTRICULAR EXTRASYSTOLES [None]
